FAERS Safety Report 19911138 (Version 1)
Quarter: 2021Q4

REPORT INFORMATION
  Report Type: Spontaneous
  Country: US (occurrence: US)
  Receive Date: 20211004
  Receipt Date: 20211004
  Transmission Date: 20220303
  Serious: No
  Sender: FDA-Public Use
  Company Number: US-ORGANON-O2109USA001699

PATIENT
  Age: 12 Year
  Sex: Male

DRUGS (3)
  1. SINGULAIR [Suspect]
     Active Substance: MONTELUKAST SODIUM
     Indication: Sleep apnoea syndrome
     Dosage: UNK
  2. FLUTICASONE [Concomitant]
     Active Substance: FLUTICASONE
     Indication: Sleep apnoea syndrome
     Dosage: UNK
  3. METHYLPHENIDATE [Concomitant]
     Active Substance: METHYLPHENIDATE
     Dosage: UNK

REACTIONS (1)
  - Product use in unapproved indication [Unknown]
